FAERS Safety Report 24401153 (Version 1)
Quarter: 2024Q4

REPORT INFORMATION
  Report Type: Spontaneous
  Country: FR (occurrence: FR)
  Receive Date: 20241006
  Receipt Date: 20241006
  Transmission Date: 20250114
  Serious: Yes (Life-Threatening)
  Sender: CHEPLAPHARM
  Company Number: None

PATIENT
  Age: 16 Year
  Sex: Female
  Weight: 57 kg

DRUGS (10)
  1. ETOPOSIDE PHOSPHATE [Suspect]
     Active Substance: ETOPOSIDE PHOSPHATE
     Indication: B-cell lymphoma
     Dosage: IV AT 4PM AT 50 ML/H, THEN INCREASED TO 160 ML/H AT 4:30PM. REDUCED RATE (INFUSION OVER 3 HOURS V...
     Route: 048
     Dates: start: 20240904, end: 20240904
  2. CYTARABINE [Suspect]
     Active Substance: CYTARABINE
     Dosage: 8PM TO 8AM
     Dates: start: 20240903
  3. CYTARABINE [Suspect]
     Active Substance: CYTARABINE
     Dosage: 8AM TO 11AM
     Dates: start: 20240904
  4. CYTARABINE [Suspect]
     Active Substance: CYTARABINE
     Dosage: 10:40 A.M. TO 1:40 P.M.: ADMINISTRATION OF CYTARABINE HD. 2.30PM
     Dates: start: 20240905
  5. CYCLOPHOSPHAMIDE [Concomitant]
     Active Substance: CYCLOPHOSPHAMIDE
     Dates: start: 20240716
  6. VINCRISTINE [Concomitant]
     Active Substance: VINCRISTINE
     Dates: start: 20240716
  7. PREDNISOLONE [Concomitant]
     Active Substance: PREDNISOLONE
     Dates: start: 20240716
  8. RITUXIMAB [Concomitant]
     Active Substance: RITUXIMAB
     Route: 042
     Dates: start: 20240724, end: 20240814
  9. METHOTREXATE [Concomitant]
     Active Substance: METHOTREXATE
     Route: 042
     Dates: start: 20240724, end: 20240814
  10. DOXORUBICIN [Concomitant]
     Active Substance: DOXORUBICIN
     Route: 042
     Dates: start: 20240724, end: 20240814

REACTIONS (1)
  - Bronchospasm [Recovered/Resolved]

NARRATIVE: CASE EVENT DATE: 20240904
